FAERS Safety Report 5160037-4 (Version None)
Quarter: 2006Q4

REPORT INFORMATION
  Report Type: 
  Country: None (occurrence: None)
  Receive Date: 20061129
  Receipt Date: 20060728
  Transmission Date: 20070319
  Serious: No
  Sender: FDA-Public Use
  Company Number: US-GLAXOSMITHKLINE-A0613959A

PATIENT
  Age: 49 Year
  Sex: Female
  Weight: 93.6 kg

DRUGS (4)
  1. WELLBUTRIN SR [Suspect]
     Indication: DRUG USE FOR UNKNOWN INDICATION
     Dosage: 100MG PER DAY
     Route: 048
     Dates: start: 20060715, end: 20060716
  2. METHOTREXATE [Concomitant]
     Dosage: 2.5MG SEE DOSAGE TEXT
     Route: 048
  3. ELAVIL [Concomitant]
     Dosage: 25MG PER DAY
     Route: 048
  4. ZOCOR [Concomitant]
     Dosage: 20MG PER DAY
     Route: 048

REACTIONS (2)
  - BLISTER [None]
  - RASH [None]
